FAERS Safety Report 8321773-1 (Version None)
Quarter: 2012Q2

REPORT INFORMATION
  Report Type: 
  Country: None (occurrence: None)
  Receive Date: 20120426
  Receipt Date: 20120411
  Transmission Date: 20120825
  Serious: Yes (Other)
  Sender: FDA-Public Use
  Company Number: JP-2012-14983

PATIENT
  Age: 81 Year
  Sex: Female
  Weight: 77 kg

DRUGS (6)
  1. SAMSCA [Suspect]
     Indication: FLUID RETENTION
     Dosage: 7.5 MG MILLIGRAM(S), QAM, ORAL
     Route: 048
     Dates: start: 20120115, end: 20120119
  2. PREMINENT (HYDROCHLOROTHIAZIDE, LOSARTAN POTASSIUM) [Concomitant]
  3. ALDACTONE [Concomitant]
  4. LEVOFLOXACIN [Concomitant]
  5. DIART (AZOSEMIDE) [Concomitant]
  6. ZOLPIDEM TARTRATE [Concomitant]

REACTIONS (4)
  - VOLUME BLOOD DECREASED [None]
  - BLOOD UREA INCREASED [None]
  - GASTROINTESTINAL HAEMORRHAGE [None]
  - EJECTION FRACTION DECREASED [None]
